FAERS Safety Report 9408932 (Version 2)
Quarter: 2013Q3

REPORT INFORMATION
  Report Type: Spontaneous
  Country: DE (occurrence: DE)
  Receive Date: 20130719
  Receipt Date: 20130802
  Transmission Date: 20140515
  Serious: Yes (Other)
  Sender: FDA-Public Use
  Company Number: DE-BRISTOL-MYERS SQUIBB COMPANY-19118181

PATIENT
  Sex: Male

DRUGS (1)
  1. BYDUREON [Suspect]

REACTIONS (1)
  - Prostatic disorder [Unknown]
